FAERS Safety Report 10657169 (Version 2)
Quarter: 2015Q1

REPORT INFORMATION
  Report Type: Spontaneous
  Country: IT (occurrence: IT)
  Receive Date: 20141217
  Receipt Date: 20150224
  Transmission Date: 20150720
  Serious: Yes (Hospitalization)
  Sender: FDA-Public Use
  Company Number: IT-ROCHE-1505171

PATIENT
  Age: 53 Year
  Sex: Female
  Weight: 52 kg

DRUGS (4)
  1. MABTHERA [Suspect]
     Active Substance: RITUXIMAB
     Indication: NON-HODGKIN^S LYMPHOMA
     Dosage: AMPOULE 500 MG 50 ML
     Route: 042
     Dates: start: 20141104, end: 20141202
  2. TRIMETON (ITALY) [Concomitant]
     Indication: PREMEDICATION
     Dosage: 10 MG/1 ML INJECTABLE SOLUTION (5 AMPOULES 1 ML)
     Route: 065
     Dates: start: 20141202, end: 20141202
  3. URBASON SOLUBILE [Concomitant]
     Active Substance: METHYLPREDNISOLONE SODIUM SUCCINATE
     Indication: PREMEDICATION
     Dosage: 20MG/ML POWDER AND SOLVENT (3 AMPOULES POWDER AND 3 AMPOULES SOLVENT 1 ML)
     Route: 040
     Dates: start: 20141202, end: 20141202
  4. TACHIPIRINA [Concomitant]
     Active Substance: ACETAMINOPHEN
     Indication: PREMEDICATION
     Dosage: ^500 MG TABLETS^ 10 TABLETS
     Route: 048
     Dates: start: 20141202, end: 20141202

REACTIONS (8)
  - Oropharyngeal pain [Recovering/Resolving]
  - Hypotension [Recovering/Resolving]
  - Leukocytosis [Recovering/Resolving]
  - Neck pain [Recovering/Resolving]
  - Urticaria [Recovering/Resolving]
  - Myalgia [Recovering/Resolving]
  - Pyrexia [Unknown]
  - Cytokine release syndrome [Recovering/Resolving]

NARRATIVE: CASE EVENT DATE: 20141202
